FAERS Safety Report 23344104 (Version 1)
Quarter: 2023Q4

REPORT INFORMATION
  Report Type: Report from Study
  Country: SA (occurrence: SA)
  Receive Date: 20231227
  Receipt Date: 20231227
  Transmission Date: 20240110
  Serious: Yes (Hospitalization)
  Sender: FDA-Public Use
  Company Number: SA-BIOGEN-2023BI01242294

PATIENT
  Age: 17 Year
  Sex: Female
  Weight: 55 kg

DRUGS (1)
  1. SPINRAZA [Suspect]
     Active Substance: NUSINERSEN
     Indication: Spinal muscular atrophy
     Dosage: LOADING DOSES (0, 14, 28, 63) THEN 1 MAINTENANCE DOSE EVERY 4 MONTHS
     Route: 050
     Dates: start: 20231019

REACTIONS (3)
  - Post procedural fever [Recovered/Resolved]
  - Procedural pain [Recovered/Resolved]
  - Post lumbar puncture syndrome [Recovered/Resolved]

NARRATIVE: CASE EVENT DATE: 20231214
